FAERS Safety Report 5674624-8 (Version None)
Quarter: 2008Q2

REPORT INFORMATION
  Report Type: 
  Country: None (occurrence: None)
  Receive Date: 20080303
  Receipt Date: 20070220
  Transmission Date: 20081010
  Serious: Yes (Other)
  Sender: FDA-Public Use
  Company Number: MK-6030590

PATIENT
  Age: 16 Year
  Sex: Male

DRUGS (2)
  1. AMNESTEEM [Suspect]
     Indication: ACNE
     Dosage: 20 MG;DAILY;ORAL
     Route: 048
     Dates: start: 20060714, end: 20060902
  2. AMNESTEEM [Suspect]
     Dosage: 40 MG;EVERY MORNING;ORAL
     Route: 048
     Dates: start: 20060714

REACTIONS (1)
  - HEPATIC ENZYME INCREASED [None]
